FAERS Safety Report 9193221 (Version 3)
Quarter: 2013Q2

REPORT INFORMATION
  Report Type: Spontaneous
  Country: US (occurrence: US)
  Receive Date: 20130327
  Receipt Date: 20130522
  Transmission Date: 20140414
  Serious: Yes (Hospitalization, Disabling)
  Sender: FDA-Public Use
  Company Number: US-CELGENEUS-163-21880-13033040

PATIENT
  Age: 64 Year
  Sex: Female

DRUGS (3)
  1. REVLIMID [Suspect]
     Indication: PLASMA CELL MYELOMA
     Dosage: 25 MILLIGRAM
     Route: 048
     Dates: start: 20130201, end: 20130308
  2. DEXAMETHASONE [Concomitant]
     Indication: PLASMA CELL MYELOMA
     Route: 048
     Dates: start: 20130201
  3. ZOMETA [Concomitant]
     Indication: PLASMA CELL MYELOMA
     Route: 041
     Dates: start: 20120126

REACTIONS (2)
  - Plasma cell myeloma [Unknown]
  - Neuropathy peripheral [Recovered/Resolved]
